FAERS Safety Report 4978545-5 (Version None)
Quarter: 2006Q2

REPORT INFORMATION
  Report Type: 
  Country: None (occurrence: None)
  Receive Date: 20060414
  Receipt Date: 20060328
  Transmission Date: 20061013
  Serious: Yes (Hospitalization)
  Sender: FDA-Public Use
  Company Number: NDA 98-01

PATIENT
  Age: 10 Year
  Sex: Female
  Weight: 30 kg

DRUGS (3)
  1. CYSTADANE [Suspect]
     Dosage: 6 G PER DAY ORAL
     Route: 048
     Dates: start: 19980601, end: 19980901
  2. COUMADIN [Concomitant]
  3. ASPIRIN [Concomitant]

REACTIONS (13)
  - AMINO ACID LEVEL INCREASED [None]
  - BRAIN OEDEMA [None]
  - FALL [None]
  - HEADACHE [None]
  - INTELLIGENCE TEST ABNORMAL [None]
  - INTRACRANIAL PRESSURE INCREASED [None]
  - LENS DISLOCATION [None]
  - NO THERAPEUTIC RESPONSE [None]
  - PANCREATITIS [None]
  - SPLENIC VEIN THROMBOSIS [None]
  - TREATMENT NONCOMPLIANCE [None]
  - VISUAL DISTURBANCE [None]
  - VOMITING [None]
